FAERS Safety Report 17251000 (Version 2)
Quarter: 2020Q1

REPORT INFORMATION
  Report Type: Spontaneous
  Country: FR (occurrence: FR)
  Receive Date: 20200109
  Receipt Date: 20200221
  Transmission Date: 20200409
  Serious: Yes (Hospitalization)
  Sender: FDA-Public Use
  Company Number: FR-UCBSA-2020000746

PATIENT
  Age: 55 Year
  Sex: Male
  Weight: 59.5 kg

DRUGS (3)
  1. KEPPRA [Suspect]
     Active Substance: LEVETIRACETAM
     Indication: EPILEPSY
     Dosage: 3000MG DAILY
     Route: 048
     Dates: start: 20191111, end: 20191219
  2. AMOXICILLINA E ACIDO CLAVULANICO MYLAN [Suspect]
     Active Substance: AMOXICILLIN\CLAVULANIC ACID
     Indication: URINARY TRACT INFECTION
     Dosage: 3 DOSAGE FORM DAILY
     Route: 048
     Dates: start: 20191206, end: 20191212
  3. VIMPAT [Suspect]
     Active Substance: LACOSAMIDE
     Indication: EPILEPSY
     Dosage: 200 MG, 2 DOSAGE FORMS DAILY
     Route: 048
     Dates: start: 20191118, end: 20191219

REACTIONS (1)
  - Drug reaction with eosinophilia and systemic symptoms [Recovering/Resolving]

NARRATIVE: CASE EVENT DATE: 20191212
